FAERS Safety Report 9408344 (Version 2)
Quarter: 2013Q4

REPORT INFORMATION
  Report Type: Spontaneous
  Country: SI (occurrence: SI)
  Receive Date: 20130718
  Receipt Date: 20131011
  Transmission Date: 20140711
  Serious: Yes (Hospitalization)
  Sender: FDA-Public Use
  Company Number: SI-GLAXOSMITHKLINE-B0908691A

PATIENT
  Sex: Male
  Weight: 100 kg

DRUGS (5)
  1. LAMICTAL [Suspect]
     Indication: BIPOLAR DISORDER
     Dosage: 125MG PER DAY
     Route: 065
     Dates: start: 20110201
  2. QUILONORM [Concomitant]
     Dosage: 900MG PER DAY
  3. QUETIAPINE [Concomitant]
     Dosage: 50MG PER DAY
     Dates: start: 2011
  4. ZOLOFT [Concomitant]
     Dosage: 100MG PER DAY
  5. DEPAKINE CHRONO [Concomitant]
     Dosage: 500MG PER DAY

REACTIONS (1)
  - Malignant melanoma [Recovered/Resolved]
